FAERS Safety Report 4413845-9 (Version None)
Quarter: 2004Q3

REPORT INFORMATION
  Report Type: 
  Country: None (occurrence: None)
  Receive Date: 20040728
  Receipt Date: 20040705
  Transmission Date: 20050211
  Serious: No
  Sender: FDA-Public Use
  Company Number: 2004AC00171

PATIENT
  Age: 55 Year
  Sex: Female

DRUGS (1)
  1. LIDOCAINE [Suspect]
     Indication: LOCAL ANAESTHESIA
     Dosage: 0.8 ML

REACTIONS (5)
  - ANAESTHETIC COMPLICATION [None]
  - FEELING ABNORMAL [None]
  - MEDICATION ERROR [None]
  - QUADRIPLEGIA [None]
  - SENSORY LOSS [None]
